FAERS Safety Report 7772271-5 (Version None)
Quarter: 2011Q3

REPORT INFORMATION
  Report Type: 
  Country: None (occurrence: None)
  Receive Date: 20110922
  Receipt Date: 20100928
  Transmission Date: 20111222
  Serious: No
  Sender: FDA-Public Use
  Company Number: US-ASTRAZENECA-2010SE45568

PATIENT
  Age: 21 Year
  Sex: Female

DRUGS (4)
  1. SEROQUEL [Suspect]
     Route: 048
  2. PRISTIQ [Concomitant]
  3. BIRTH CONTROL [Concomitant]
  4. TOPAMAX [Concomitant]

REACTIONS (2)
  - ALOPECIA [None]
  - FATIGUE [None]
